FAERS Safety Report 5289568-3 (Version None)
Quarter: 2007Q2

REPORT INFORMATION
  Report Type: 
  Country: None (occurrence: None)
  Receive Date: 20070406
  Receipt Date: 20070329
  Transmission Date: 20071010
  Serious: Yes (Hospitalization)
  Sender: FDA-Public Use
  Company Number: US-ROCHE-482988

PATIENT
  Age: 15 Year
  Sex: Female
  Weight: 57 kg

DRUGS (16)
  1. CELLCEPT [Suspect]
     Indication: GLOMERULONEPHRITIS
     Route: 048
     Dates: start: 20040813
  2. CELLCEPT [Suspect]
     Route: 048
     Dates: start: 20051020
  3. CELLCEPT [Suspect]
     Route: 048
     Dates: start: 20060320
  4. CELLCEPT [Suspect]
     Route: 048
     Dates: start: 20061229
  5. AVAPRO [Concomitant]
  6. NEXIUM [Concomitant]
  7. ARANESP [Concomitant]
     Dosage: REPORTED AS 1 EVERY 2-3 MONTHS AS NEEDED.
  8. IRON [Concomitant]
     Dosage: REPORTED AS ^TANDEM IRON^
  9. MULTI-VITAMIN [Concomitant]
  10. LACTOBACILLUS [Concomitant]
  11. WELLBUTRIN [Concomitant]
     Dosage: REPORTED AS WELLBUTRIN XL
  12. ZYRTEC [Concomitant]
  13. OVCON-35 [Concomitant]
  14. TRAZODONE HCL [Concomitant]
     Indication: SOMNOLENCE
  15. ROZEREM [Concomitant]
     Indication: SOMNOLENCE
  16. SINGULAIR [Concomitant]

REACTIONS (6)
  - BLOOD IMMUNOGLOBULIN G DECREASED [None]
  - HYPOGAMMAGLOBULINAEMIA [None]
  - NAUSEA [None]
  - PYREXIA [None]
  - SINUSITIS [None]
  - VOMITING [None]
